FAERS Safety Report 9873184 (Version 3)
Quarter: 2015Q1

REPORT INFORMATION
  Report Type: Other
  Country: US (occurrence: US)
  Receive Date: 20140206
  Receipt Date: 20150203
  Transmission Date: 20150721
  Serious: Yes (Disabling)
  Sender: FDA-Public Use
  Company Number: US-ACORDA-ACO_100940_2013

PATIENT
  Sex: Male
  Weight: 116.1 kg

DRUGS (9)
  1. ENABLEX [Concomitant]
     Active Substance: DARIFENACIN\DARIFENACIN HYDROBROMIDE
     Indication: PRODUCT USED FOR UNKNOWN INDICATION
     Dosage: 15 MG, UNK
     Route: 065
  2. TECFIDERA [Suspect]
     Active Substance: DIMETHYL FUMARATE
     Indication: MULTIPLE SCLEROSIS
     Dosage: UNK, BID
     Route: 048
     Dates: start: 201309
  3. VESICARE [Concomitant]
     Active Substance: SOLIFENACIN SUCCINATE
     Indication: PRODUCT USED FOR UNKNOWN INDICATION
     Dosage: UNK
     Route: 065
  4. AMPYRA [Suspect]
     Active Substance: DALFAMPRIDINE
     Indication: GAIT DISTURBANCE
     Dosage: 10 MG, BID
     Route: 048
     Dates: start: 2010
  5. LUNESTA [Concomitant]
     Active Substance: ESZOPICLONE
     Indication: INSOMNIA
     Dosage: 3 MG, ONE AT BEDTIME
     Route: 048
     Dates: start: 20131209
  6. METFORMIN [Concomitant]
     Active Substance: METFORMIN HYDROCHLORIDE
     Indication: PRODUCT USED FOR UNKNOWN INDICATION
     Dosage: 500 MG, UNK
     Route: 065
  7. TRYPTOPHAN [Concomitant]
     Active Substance: TRYPTOPHAN
     Indication: PRODUCT USED FOR UNKNOWN INDICATION
     Dosage: UNK
     Route: 065
  8. LYRICA [Concomitant]
     Active Substance: PREGABALIN
     Indication: MULTIPLE SCLEROSIS
     Dosage: 50 MG, TID
     Route: 048
     Dates: start: 20131209
  9. CIALIS [Concomitant]
     Active Substance: TADALAFIL
     Indication: PRODUCT USED FOR UNKNOWN INDICATION
     Dosage: 5 MG, UNK
     Route: 065

REACTIONS (7)
  - Multiple sclerosis [Unknown]
  - Fatigue [Recovered/Resolved]
  - Walking aid user [Not Recovered/Not Resolved]
  - Gait disturbance [Recovered/Resolved]
  - Somnolence [Recovered/Resolved]
  - Gait disturbance [Unknown]
  - Drug dose omission [Unknown]

NARRATIVE: CASE EVENT DATE: 2013
